FAERS Safety Report 8285607 (Version 2)
Quarter: 2012Q4

REPORT INFORMATION
  Report Type: 
  Country: MX (occurrence: MX)
  Receive Date: 20111213
  Receipt Date: 20121120
  Transmission Date: 20130627
  Serious: Yes (Hospitalization, Other)
  Sender: FDA-Public Use
  Company Number: MX-BRISTOL-MYERS SQUIBB COMPANY-16275364

PATIENT
  Age: 72 Year
  Sex: Female
  Weight: 64 kg

DRUGS (2)
  1. COAPROVEL TABS [Suspect]
     Indication: HYPERTENSION
     Dosage: On 31-Oct-2012 Dose decreased to 1 DF: 1 tabs every 12hrs to 1 tab every 24hrs.
     Route: 048
     Dates: start: 2007
  2. LIPITOR [Concomitant]
     Indication: HYPERCHOLESTEROLAEMIA
     Dosage: 1 Tabs /24hrs
     Route: 048

REACTIONS (6)
  - Cervical vertebral fracture [Recovered/Resolved]
  - Tibia fracture [Not Recovered/Not Resolved]
  - Foot fracture [Not Recovered/Not Resolved]
  - Spinal fracture [Not Recovered/Not Resolved]
  - Fall [Recovered/Resolved]
  - Medication error [Unknown]
